FAERS Safety Report 8677502 (Version 3)
Quarter: 2012Q4

REPORT INFORMATION
  Report Type: 
  Country: US (occurrence: US)
  Receive Date: 20120723
  Receipt Date: 20121005
  Transmission Date: 20130627
  Serious: Yes (Death, Hospitalization)
  Sender: FDA-Public Use
  Company Number: US-PFIZER INC-2012172355

PATIENT
  Age: 50 Year
  Sex: Male

DRUGS (1)
  1. VFEND [Suspect]
     Indication: FUNGAL INFECTION
     Dosage: 200 mg, 2x/day
     Dates: start: 20120622

REACTIONS (3)
  - Septic shock [Fatal]
  - Disease progression [Fatal]
  - Neutropenia [Fatal]
